FAERS Safety Report 14128175 (Version 3)
Quarter: 2017Q4

REPORT INFORMATION
  Report Type: Spontaneous
  Country: JP (occurrence: JP)
  Receive Date: 20171026
  Receipt Date: 20171214
  Transmission Date: 20180321
  Serious: Yes (Life-Threatening, Other)
  Sender: FDA-Public Use
  Company Number: JP-B.I. PHARMACEUTICALS,INC./RIDGEFIELD-2017-NB-006199

PATIENT
  Age: 80 Year
  Sex: Female
  Weight: 43 kg

DRUGS (14)
  1. PROPOFOL. [Concomitant]
     Active Substance: PROPOFOL
     Indication: GENERAL ANAESTHESIA
     Route: 042
     Dates: start: 20171023, end: 20171023
  2. JARDIANCE [Suspect]
     Active Substance: EMPAGLIFLOZIN
     Indication: DIABETES MELLITUS
     Route: 048
     Dates: start: 2016, end: 20171022
  3. AMARYL [Suspect]
     Active Substance: GLIMEPIRIDE
     Indication: TYPE 2 DIABETES MELLITUS
     Route: 048
     Dates: start: 2016, end: 20171022
  4. FENTANYL. [Concomitant]
     Active Substance: FENTANYL
     Indication: GENERAL ANAESTHESIA
     Route: 042
     Dates: start: 20171023, end: 20171026
  5. UNISIA [Concomitant]
     Active Substance: AMLODIPINE BESYLATE\CANDESARTAN CILEXETIL
     Indication: BLOOD PRESSURE MANAGEMENT
     Route: 048
  6. ACELIO [Concomitant]
     Active Substance: ACETAMINOPHEN
     Indication: ANALGESIC THERAPY
     Route: 042
     Dates: start: 20171023
  7. CEFAZOLIN SODIUM. [Concomitant]
     Active Substance: CEFAZOLIN SODIUM
     Indication: INFECTION PROPHYLAXIS
     Route: 042
     Dates: start: 20171023, end: 20171102
  8. ANAPEINE [Concomitant]
     Active Substance: ROPIVACAINE HYDROCHLORIDE
     Indication: EPIDURAL ANAESTHESIA
     Route: 008
     Dates: start: 20171023, end: 20171026
  9. EQUA [Suspect]
     Active Substance: VILDAGLIPTIN
     Indication: DIABETES MELLITUS
     Route: 048
  10. DIAZEPAM. [Concomitant]
     Active Substance: DIAZEPAM
     Indication: ANXIOLYTIC THERAPY
     Route: 048
     Dates: start: 20171022, end: 20171022
  11. SENNOSIDE [Concomitant]
     Active Substance: SENNOSIDES
     Indication: PREOPERATIVE CARE
     Route: 048
     Dates: start: 20171022, end: 20171022
  12. BROMHEXINE HYDROCHLORIDE [Concomitant]
     Active Substance: BROMHEXINE HYDROCHLORIDE
     Indication: PRODUCTIVE COUGH
     Route: 055
     Dates: start: 20171022, end: 20171028
  13. ULTIVA [Concomitant]
     Active Substance: REMIFENTANIL HYDROCHLORIDE
     Indication: GENERAL ANAESTHESIA
     Route: 042
     Dates: start: 20171023, end: 20171023
  14. ESLAX [Concomitant]
     Active Substance: ROCURONIUM BROMIDE
     Indication: GENERAL ANAESTHESIA
     Route: 042
     Dates: start: 20171023, end: 20171023

REACTIONS (3)
  - Metabolic acidosis [Recovered/Resolved]
  - Dehydration [Recovered/Resolved]
  - Malignant mediastinal neoplasm [Not Recovered/Not Resolved]

NARRATIVE: CASE EVENT DATE: 201710
